APPROVED DRUG PRODUCT: METHYLDOPA
Active Ingredient: METHYLDOPA
Strength: 125MG
Dosage Form/Route: TABLET;ORAL
Application: A070070 | Product #003
Applicant: ACCORD HEALTHCARE INC
Approved: Oct 15, 1985 | RLD: No | RS: No | Type: DISCN